FAERS Safety Report 4813372-0 (Version None)
Quarter: 2005Q4

REPORT INFORMATION
  Report Type: 
  Country: None (occurrence: None)
  Receive Date: 20051028
  Receipt Date: 20050511
  Transmission Date: 20060501
  Serious: No
  Sender: FDA-Public Use
  Company Number: US-GLAXOSMITHKLINE-A0558138A

PATIENT
  Sex: Male

DRUGS (5)
  1. ADVAIR DISKUS 100/50 [Suspect]
     Indication: ASTHMA
     Route: 055
     Dates: start: 20050415
  2. ATROVENT [Concomitant]
  3. ALBUTEROL [Concomitant]
  4. MEDROL [Concomitant]
     Route: 065
  5. RELPAX [Concomitant]

REACTIONS (1)
  - ORAL CANDIDIASIS [None]
